FAERS Safety Report 4391469-X (Version None)
Quarter: 2004Q3

REPORT INFORMATION
  Report Type: 
  Country: None (occurrence: None)
  Receive Date: 20040707
  Receipt Date: 20040624
  Transmission Date: 20050211
  Serious: Yes (Other)
  Sender: FDA-Public Use
  Company Number: AU-GLAXOSMITHKLINE-B0337576A

PATIENT
  Sex: Female

DRUGS (1)
  1. ZYBAN [Suspect]
     Dosage: 2TAB PER DAY

REACTIONS (3)
  - HEART RATE INCREASED [None]
  - HOT FLUSH [None]
  - LOSS OF CONSCIOUSNESS [None]
